FAERS Safety Report 21461093 (Version 3)
Quarter: 2022Q4

REPORT INFORMATION
  Report Type: Report from Study
  Country: US (occurrence: US)
  Receive Date: 20221015
  Receipt Date: 20221207
  Transmission Date: 20230113
  Serious: No
  Sender: FDA-Public Use
  Company Number: US-ABBVIE-4138710

PATIENT
  Sex: Female

DRUGS (2)
  1. RINVOQ [Suspect]
     Active Substance: UPADACITINIB
     Indication: Rheumatoid arthritis
     Dosage: 15 MILLIGRAM THERAPY END DATE: 2022
     Route: 048
     Dates: start: 20220812
  2. RINVOQ [Suspect]
     Active Substance: UPADACITINIB
     Indication: Rheumatoid arthritis
     Route: 048
     Dates: start: 2022

REACTIONS (5)
  - COVID-19 [Recovering/Resolving]
  - Pneumonia [Unknown]
  - Pain [Unknown]
  - Asthenia [Unknown]
  - Musculoskeletal stiffness [Unknown]
